FAERS Safety Report 8529465-0 (Version None)
Quarter: 2012Q3

REPORT INFORMATION
  Report Type: 
  Country: None (occurrence: None)
  Receive Date: 20120723
  Receipt Date: 20120713
  Transmission Date: 20120928
  Serious: Yes (Other)
  Sender: FDA-Public Use
  Company Number: AU-JNJFOC-20120400627

PATIENT
  Sex: Male
  Weight: 83 kg

DRUGS (11)
  1. STELARA [Suspect]
     Route: 058
     Dates: start: 20110801, end: 20110801
  2. STELARA [Suspect]
     Dosage: NEXT INJECTION WAS ON 7TH SEP (UNSPECIFIED YEAR)
     Route: 058
     Dates: start: 20120615, end: 20120615
  3. XANAX [Concomitant]
     Indication: POST-TRAUMATIC STRESS DISORDER
     Route: 065
  4. STELARA [Suspect]
     Route: 058
     Dates: start: 20100609, end: 20100609
  5. STELARA [Suspect]
     Indication: PSORIASIS
     Route: 058
     Dates: start: 20100512, end: 20100512
  6. STELARA [Suspect]
     Route: 058
     Dates: start: 20110509, end: 20110509
  7. STELARA [Suspect]
     Route: 058
     Dates: start: 20120110, end: 20120110
  8. STELARA [Suspect]
     Route: 058
     Dates: start: 20101124, end: 20101124
  9. STELARA [Suspect]
     Route: 058
     Dates: start: 20110214, end: 20110214
  10. STELARA [Suspect]
     Route: 058
     Dates: start: 20111024, end: 20111024
  11. STELARA [Suspect]
     Route: 058
     Dates: start: 20100901, end: 20100901

REACTIONS (12)
  - NASOPHARYNGITIS [None]
  - POST-TRAUMATIC STRESS DISORDER [None]
  - VISUAL IMPAIRMENT [None]
  - BLOOD PRESSURE ABNORMAL [None]
  - PSORIASIS [None]
  - COUGH [None]
  - BLOOD CHOLESTEROL INCREASED [None]
  - PYREXIA [None]
  - BLOOD GLUCOSE INCREASED [None]
  - HYPOACUSIS [None]
  - INCORRECT DRUG ADMINISTRATION DURATION [None]
  - LIVER DISORDER [None]
